FAERS Safety Report 13917421 (Version 11)
Quarter: 2022Q1

REPORT INFORMATION
  Report Type: Spontaneous
  Country: GB (occurrence: GB)
  Receive Date: 20170829
  Receipt Date: 20220322
  Transmission Date: 20220423
  Serious: Yes (Death, Other)
  Sender: FDA-Public Use
  Company Number: None

PATIENT
  Age: 44 Year
  Sex: Female

DRUGS (14)
  1. MORPHINE SULFATE [Suspect]
     Active Substance: MORPHINE SULFATE
     Indication: Product used for unknown indication
     Dosage: 6 OR 7 TABLETS
     Route: 065
     Dates: start: 20161014, end: 20161014
  2. MORPHINE SULFATE [Suspect]
     Active Substance: MORPHINE SULFATE
     Dosage: UNK
     Route: 065
  3. MORPHINE SULFATE [Suspect]
     Active Substance: MORPHINE SULFATE
     Dosage: 1 TOTAL, 6 OR 7 TABLETS
     Route: 065
     Dates: start: 20161014, end: 20161014
  4. PREGABALIN [Suspect]
     Active Substance: PREGABALIN
     Indication: Product used for unknown indication
     Dosage: 3 DF, TOTAL
     Route: 065
  5. PREGABALIN [Suspect]
     Active Substance: PREGABALIN
     Dosage: UNK
     Route: 065
  6. PREGABALIN [Suspect]
     Active Substance: PREGABALIN
     Dosage: 3 DF, TOTAL
     Route: 065
     Dates: start: 20161015, end: 20161015
  7. ZOPICLONE [Suspect]
     Active Substance: ZOPICLONE
     Indication: Sleep disorder
     Dosage: 14 TABLET, FOR TWO WEEKS (TABLET)
     Route: 048
  8. ZOPICLONE [Suspect]
     Active Substance: ZOPICLONE
     Dosage: UNK (TABLET)
     Route: 065
  9. ZOPICLONE [Suspect]
     Active Substance: ZOPICLONE
     Dosage: 14 TABLET, FOR TWO WEEKS (FILM-COATED TABLET)
     Route: 048
  10. ZOPICLONE [Suspect]
     Active Substance: ZOPICLONE
     Dosage: UNK (FILM-COATED TABLET)
     Route: 065
  11. COCODAMOL [Suspect]
     Active Substance: ACETAMINOPHEN\CODEINE PHOSPHATE
     Indication: Pain
     Dosage: 28 DF, DAILY [112 TABLET, FOR TWO WEEKS]
     Route: 048
  12. COCODAMOL [Suspect]
     Active Substance: ACETAMINOPHEN\CODEINE PHOSPHATE
     Dosage: 28 DF, DAILY [112 TABLET, FOR TWO WEEKS]
     Route: 048
  13. ACETAMINOPHEN [Suspect]
     Active Substance: ACETAMINOPHEN
     Indication: Product used for unknown indication
     Dosage: UNK
     Route: 065
  14. ACETAMINOPHEN [Suspect]
     Active Substance: ACETAMINOPHEN
     Dosage: UNK
     Route: 065

REACTIONS (10)
  - Accidental overdose [Fatal]
  - Toxicity to various agents [Fatal]
  - Eye pain [Fatal]
  - Gait disturbance [Fatal]
  - Dysarthria [Fatal]
  - Vision blurred [Fatal]
  - Intentional product misuse [Fatal]
  - Prescription drug used without a prescription [Fatal]
  - Drug abuse [Not Recovered/Not Resolved]
  - Drug diversion [Not Recovered/Not Resolved]

NARRATIVE: CASE EVENT DATE: 20161001
